FAERS Safety Report 12012983 (Version 1)
Quarter: 2016Q1

REPORT INFORMATION
  Report Type: Spontaneous
  Country: US (occurrence: US)
  Receive Date: 20160205
  Receipt Date: 20160205
  Transmission Date: 20160526
  Serious: Yes (Hospitalization)
  Sender: FDA-Public Use
  Company Number: US-VERTEX PHARMACEUTICALS-2016-000643

PATIENT
  Age: 14 Year
  Sex: Female

DRUGS (12)
  1. ADVAIR HFA [Concomitant]
     Active Substance: FLUTICASONE PROPIONATE\SALMETEROL XINAFOATE
     Route: 055
  2. ALBUTEROL. [Concomitant]
     Active Substance: ALBUTEROL
  3. PREDNISONE. [Concomitant]
     Active Substance: PREDNISONE
  4. PULMOZYME [Concomitant]
     Active Substance: DORNASE ALFA
  5. PREVACID [Concomitant]
     Active Substance: LANSOPRAZOLE
  6. ORKAMBI [Suspect]
     Active Substance: IVACAFTOR\LUMACAFTOR
     Indication: CYSTIC FIBROSIS
     Dosage: 2 DF (400/250 MG), BID
     Route: 048
     Dates: start: 201508
  7. VITAMIN D [Concomitant]
     Active Substance: CHOLECALCIFEROL
  8. KEFLEX [Concomitant]
     Active Substance: CEPHALEXIN
  9. NASONEX [Concomitant]
     Active Substance: MOMETASONE FUROATE
  10. MULTIVITAMIN [Concomitant]
     Active Substance: VITAMINS
  11. URSODIOL. [Concomitant]
     Active Substance: URSODIOL
  12. ZENPEP [Concomitant]
     Active Substance: PANCRELIPASE AMYLASE\PANCRELIPASE LIPASE\PANCRELIPASE PROTEASE

REACTIONS (1)
  - Hospitalisation [Unknown]
